FAERS Safety Report 24334235 (Version 1)
Quarter: 2024Q3

REPORT INFORMATION
  Report Type: Spontaneous
  Country: GB (occurrence: GB)
  Receive Date: 20240918
  Receipt Date: 20240918
  Transmission Date: 20241016
  Serious: Yes (Other)
  Sender: TEVA
  Company Number: None

PATIENT
  Age: 36 Year

DRUGS (1)
  1. LORATADINE [Suspect]
     Active Substance: LORATADINE
     Route: 065

REACTIONS (1)
  - Lip swelling [Not Recovered/Not Resolved]
